FAERS Safety Report 4461096-4 (Version None)
Quarter: 2004Q3

REPORT INFORMATION
  Report Type: 
  Country: None (occurrence: None)
  Receive Date: 20040920
  Receipt Date: 20040920
  Transmission Date: 20050211
  Serious: Yes (Other)
  Sender: FDA-Public Use
  Company Number: None

PATIENT
  Sex: Female

DRUGS (1)
  1. DARBOPOETIN ALFA AMGEN [Suspect]
     Indication: ANAEMIA
     Dosage: 40 MCG ONCE SC
     Route: 058
     Dates: start: 20040730

REACTIONS (3)
  - EAR DISORDER [None]
  - NAUSEA [None]
  - PAIN [None]
